FAERS Safety Report 6863646-7 (Version None)
Quarter: 2010Q3

REPORT INFORMATION
  Report Type: 
  Country: None (occurrence: None)
  Receive Date: 20100721
  Receipt Date: 20080307
  Transmission Date: 20110219
  Serious: No
  Sender: FDA-Public Use
  Company Number: US-PFIZER INC-2008022799

PATIENT
  Sex: Female
  Weight: 71.8 kg

DRUGS (4)
  1. CHANTIX [Suspect]
     Indication: SMOKING CESSATION THERAPY
     Route: 048
     Dates: start: 20070101, end: 20070701
  2. QUINAPRIL [Concomitant]
     Route: 048
     Dates: start: 19930101
  3. PERCOGESIC [Concomitant]
     Route: 048
     Dates: start: 19930101
  4. GEODON [Concomitant]
     Route: 048
     Dates: start: 19930101

REACTIONS (2)
  - ABNORMAL DREAMS [None]
  - TENSION HEADACHE [None]
